FAERS Safety Report 7320506-5 (Version None)
Quarter: 2011Q1

REPORT INFORMATION
  Report Type: 
  Country: None (occurrence: None)
  Receive Date: 20110228
  Receipt Date: 20110224
  Transmission Date: 20110831
  Serious: Yes (Other)
  Sender: FDA-Public Use
  Company Number: US-BRISTOL-MYERS SQUIBB COMPANY-15568421

PATIENT
  Age: 76 Year
  Sex: Female
  Weight: 77 kg

DRUGS (1)
  1. AVALIDE [Suspect]
     Dosage: AVALIDE 300/12.5 FOR APPROXIMATELY 10YRS

REACTIONS (2)
  - NEOPLASM MALIGNANT [None]
  - HYPERTENSION [None]
